FAERS Safety Report 15043273 (Version 2)
Quarter: 2018Q2

REPORT INFORMATION
  Report Type: Spontaneous
  Country: GB (occurrence: GB)
  Receive Date: 20180621
  Receipt Date: 20180621
  Transmission Date: 20180711
  Serious: Yes (Other)
  Sender: FDA-Public Use
  Company Number: GB-CELGENEUS-GBR-20180602829

PATIENT
  Sex: Female

DRUGS (6)
  1. RIVAROXABAN [Concomitant]
     Active Substance: RIVAROXABAN
     Indication: ATRIAL FIBRILLATION
     Route: 065
  2. REVLIMID [Suspect]
     Active Substance: LENALIDOMIDE
     Route: 048
     Dates: start: 201506
  3. REVLIMID [Suspect]
     Active Substance: LENALIDOMIDE
     Route: 048
  4. EPO [Concomitant]
     Active Substance: ERYTHROPOIETIN
     Indication: ANAEMIA
     Route: 065
     Dates: start: 2012
  5. G-CSF [Concomitant]
     Active Substance: GRANULOCYTE COLONY-STIMULATING FACTOR NOS
     Indication: NEUTROPENIC SEPSIS
     Route: 065
  6. REVLIMID [Suspect]
     Active Substance: LENALIDOMIDE
     Indication: MYELODYSPLASTIC SYNDROME
     Route: 048
     Dates: start: 201305

REACTIONS (1)
  - Breast cancer [Unknown]

NARRATIVE: CASE EVENT DATE: 201505
